FAERS Safety Report 9140390 (Version 2)
Quarter: 2013Q1

REPORT INFORMATION
  Report Type: Spontaneous
  Country: JP (occurrence: JP)
  Receive Date: 20130305
  Receipt Date: 20130319
  Transmission Date: 20140127
  Serious: Yes (Other)
  Sender: FDA-Public Use
  Company Number: JP-ELI_LILLY_AND_COMPANY-JP201302006629

PATIENT
  Age: 59 Year
  Sex: Male

DRUGS (2)
  1. GEMZAR [Suspect]
     Indication: BLADDER CANCER
     Dosage: UNK
     Route: 042
     Dates: start: 201206, end: 201208
  2. CISPLATIN [Concomitant]
     Indication: BLADDER CANCER
     Dosage: UNK
     Route: 042
     Dates: start: 201206, end: 201208

REACTIONS (4)
  - Sepsis [Recovering/Resolving]
  - Disseminated intravascular coagulation [Recovering/Resolving]
  - Pancytopenia [Unknown]
  - Gastroenteritis radiation [Unknown]
